FAERS Safety Report 22007224 (Version 1)
Quarter: 2023Q1

REPORT INFORMATION
  Report Type: Spontaneous
  Country: None (occurrence: FR)
  Receive Date: 20230217
  Receipt Date: 20230217
  Transmission Date: 20230418
  Serious: Yes (Other)
  Sender: FDA-Public Use
  Company Number: FR-Ascend Therapeutics US, LLC-2138155

PATIENT
  Age: 15 Year
  Sex: Female

DRUGS (4)
  1. ESTROGEL [Suspect]
     Active Substance: ESTRADIOL
     Indication: Product used for unknown indication
     Route: 064
     Dates: start: 1957, end: 1957
  2. ESTROGEL [Suspect]
     Active Substance: ESTRADIOL
  3. ESTRADIOL [Suspect]
     Active Substance: ESTRADIOL
     Route: 064
     Dates: start: 1957, end: 1957
  4. PROGESTERONE [Suspect]
     Active Substance: PROGESTERONE
     Route: 064
     Dates: start: 1957, end: 1957

REACTIONS (1)
  - Anorexia and bulimia syndrome [Unknown]

NARRATIVE: CASE EVENT DATE: 19720101
